FAERS Safety Report 21676879 (Version 1)
Quarter: 2022Q4

REPORT INFORMATION
  Report Type: Report from Study
  Country: US (occurrence: US)
  Receive Date: 20221203
  Receipt Date: 20221203
  Transmission Date: 20230112
  Serious: Yes (Other)
  Sender: FDA-Public Use
  Company Number: US-ABBVIE-4219685

PATIENT
  Sex: Male

DRUGS (2)
  1. HUMIRA [Suspect]
     Active Substance: ADALIMUMAB
     Indication: Ankylosing spondylitis
     Dosage: LAST ADMIN DATE- 2022
     Route: 058
  2. HUMIRA [Suspect]
     Active Substance: ADALIMUMAB
     Dosage: FIRST ADMIN DATE- NOV 2022
     Route: 058

REACTIONS (4)
  - Back disorder [Recovering/Resolving]
  - Spondylolisthesis [Recovering/Resolving]
  - Inflammation [Unknown]
  - Nerve compression [Recovering/Resolving]

NARRATIVE: CASE EVENT DATE: 20220101
